FAERS Safety Report 5291959-1 (Version None)
Quarter: 2007Q2

REPORT INFORMATION
  Report Type: 
  Country: None (occurrence: None)
  Receive Date: 20070404
  Receipt Date: 20070326
  Transmission Date: 20071010
  Serious: Yes (Hospitalization)
  Sender: FDA-Public Use
  Company Number: 310001L07TWN

PATIENT
  Age: 31 Year
  Sex: Female

DRUGS (4)
  1. GONAL-F [Suspect]
     Indication: IN VITRO FERTILISATION
     Dosage: 150 IU
  2. CHORIONIC GONADOTROPIN [Suspect]
     Indication: IN VITRO FERTILISATION
     Dosage: 1000 IU
  3. CLOMIPHENE CITRATE [Suspect]
     Indication: IN VITRO FERTILISATION
     Dosage: 100 MG, 1 IN 1 DAYS
  4. CETROTIDE [Concomitant]

REACTIONS (4)
  - CAESAREAN SECTION [None]
  - OVARIAN CYST [None]
  - OVARIAN HYPERSTIMULATION SYNDROME [None]
  - TUMOUR MARKER INCREASED [None]
